FAERS Safety Report 7206761-0 (Version None)
Quarter: 2011Q1

REPORT INFORMATION
  Report Type: 
  Country: None (occurrence: None)
  Receive Date: 20110103
  Receipt Date: 20101221
  Transmission Date: 20110831
  Serious: Yes (Death)
  Sender: FDA-Public Use
  Company Number: US-SANOFI-AVENTIS-F01200801473

PATIENT
  Age: 62 Year
  Sex: Female

DRUGS (5)
  1. IRINOTECAN HCL [Suspect]
     Route: 065
  2. 5-FU [Suspect]
     Route: 065
  3. INVESTIGATIONAL DRUG [Suspect]
     Route: 048
     Dates: start: 20080605, end: 20080825
  4. OXALIPLATIN [Suspect]
     Route: 065
  5. BEVACIZUMAB [Suspect]
     Route: 065

REACTIONS (1)
  - DEHYDRATION [None]
